FAERS Safety Report 10382174 (Version 4)
Quarter: 2015Q3

REPORT INFORMATION
  Report Type: Spontaneous
  Country: US (occurrence: US)
  Receive Date: 20140813
  Receipt Date: 20150806
  Transmission Date: 20151125
  Serious: Yes (Hospitalization)
  Sender: FDA-Public Use
  Company Number: US-PURDUE-USA-2014-0116453

PATIENT
  Age: 36 Year
  Sex: Female
  Weight: 63.7 kg

DRUGS (5)
  1. HYDROMORPHONE HCL (SIMILAR TO 19-892) [Suspect]
     Active Substance: HYDROMORPHONE HYDROCHLORIDE
     Indication: PAIN
     Dosage: 4 MG, Q4H PRN
     Route: 048
     Dates: start: 20140725, end: 20140726
  2. LORAZEPAM. [Concomitant]
     Active Substance: LORAZEPAM
     Indication: ANXIETY
     Dosage: UNK
     Route: 048
     Dates: start: 20140502
  3. FASLODEX [Suspect]
     Active Substance: FULVESTRANT
     Indication: BREAST CANCER METASTATIC
     Dosage: UNK, CYCLIC (DAYS 1 AND 15 OF CYCLE 1, THEN ON DAY 1 OF EACH SUBSEQUENT 28-DAY CYCLE)
     Route: 030
     Dates: start: 20140725
  4. TRAMADOL. [Concomitant]
     Active Substance: TRAMADOL
     Indication: PAIN
     Dosage: UNK
     Route: 048
     Dates: start: 20140314, end: 20140716
  5. LORAZEPAM. [Concomitant]
     Active Substance: LORAZEPAM
     Indication: SOMNOLENCE

REACTIONS (8)
  - Urinary tract infection bacterial [Recovered/Resolved]
  - Sinus bradycardia [Not Recovered/Not Resolved]
  - Dyspnoea [Unknown]
  - Nausea [Unknown]
  - Vomiting [Unknown]
  - Dizziness [Unknown]
  - Presyncope [Unknown]
  - Vertigo [Unknown]

NARRATIVE: CASE EVENT DATE: 20140726
